FAERS Safety Report 16742687 (Version 2)
Quarter: 2019Q3

REPORT INFORMATION
  Report Type: Report from Study
  Country: None (occurrence: US)
  Receive Date: 20190826
  Receipt Date: 20190923
  Transmission Date: 20191005
  Serious: Yes (Other)
  Sender: FDA-Public Use
  Company Number: US-ABBVIE-19K-163-2899342-00

PATIENT
  Age: 42 Year
  Sex: Female

DRUGS (2)
  1. ORILISSA [Suspect]
     Active Substance: ELAGOLIX SODIUM
     Indication: ENDOMETRIOSIS
     Route: 048
     Dates: start: 201808, end: 201810
  2. ORILISSA [Suspect]
     Active Substance: ELAGOLIX SODIUM
     Route: 048
     Dates: start: 201810, end: 201903

REACTIONS (6)
  - Hysterectomy [Unknown]
  - Drug intolerance [Unknown]
  - Headache [Unknown]
  - Hot flush [Recovered/Resolved]
  - Dyspepsia [Unknown]
  - Pain [Unknown]

NARRATIVE: CASE EVENT DATE: 201904
